FAERS Safety Report 21578492 (Version 2)
Quarter: 2022Q4

REPORT INFORMATION
  Report Type: Spontaneous
  Country: US (occurrence: US)
  Receive Date: 20221110
  Receipt Date: 20221201
  Transmission Date: 20230112
  Serious: Yes (Life-Threatening, Hospitalization, Other)
  Sender: FDA-Public Use
  Company Number: US-TEVA-2022-US-2823502

PATIENT
  Age: 72 Year
  Sex: Male

DRUGS (12)
  1. HYDROCORTISONE [Suspect]
     Active Substance: HYDROCORTISONE
     Indication: Septic shock
     Route: 065
  2. HYDROCORTISONE [Suspect]
     Active Substance: HYDROCORTISONE
     Indication: Systemic inflammatory response syndrome
     Dosage: FOR 10 DAYS; 25-200 MG/DAY WITH TAPERING
     Route: 065
  3. HYDROCORTISONE [Suspect]
     Active Substance: HYDROCORTISONE
     Route: 065
  4. DEXAMETHASONE [Suspect]
     Active Substance: DEXAMETHASONE
     Indication: Septic shock
     Dosage: 4 MILLIGRAM DAILY;
     Route: 065
  5. PREDNISONE [Suspect]
     Active Substance: PREDNISONE
     Indication: Systemic inflammatory response syndrome
     Dosage: 20 MILLIGRAM DAILY;
     Route: 065
  6. NIVOLUMAB [Suspect]
     Active Substance: NIVOLUMAB
     Indication: Colorectal cancer metastatic
     Route: 065
  7. CV301 [Concomitant]
     Indication: Colorectal cancer metastatic
     Dosage: INDUCTION THERAPY; FOR 1 MONTH
     Route: 065
  8. CV301 [Concomitant]
     Dosage: IN COMBINATION WITH FOLFOX REGIMEN AND NIVOLUMAB
     Route: 065
  9. LEUCOVORIN [Concomitant]
     Active Substance: LEUCOVORIN
     Indication: Colorectal cancer metastatic
     Dosage: FOUR CYCLES
     Route: 065
  10. FLUOROURACIL [Concomitant]
     Active Substance: FLUOROURACIL
     Indication: Colorectal cancer metastatic
     Dosage: FOUR CYCLES
     Route: 065
  11. OXALIPLATIN [Concomitant]
     Active Substance: OXALIPLATIN
     Indication: Colorectal cancer metastatic
     Dosage: FOUR CYCLES
     Route: 065
  12. MICAFUNGIN [Concomitant]
     Active Substance: MICAFUNGIN
     Indication: Candida infection
     Route: 065

REACTIONS (5)
  - Cytokine release syndrome [Recovering/Resolving]
  - Adrenal insufficiency [Unknown]
  - Drug withdrawal syndrome [Unknown]
  - Acute kidney injury [Recovering/Resolving]
  - Respiratory failure [Recovering/Resolving]
